FAERS Safety Report 12945968 (Version 2)
Quarter: 2016Q4

REPORT INFORMATION
  Report Type: Spontaneous
  Country: IT (occurrence: IT)
  Receive Date: 20161116
  Receipt Date: 20161121
  Transmission Date: 20170207
  Serious: Yes (Hospitalization, Other)
  Sender: FDA-Public Use
  Company Number: IT-ASTRAZENECA-2016SF18121

PATIENT
  Age: 59 Year
  Sex: Female
  Weight: 119 kg

DRUGS (2)
  1. FORXIGA [Suspect]
     Active Substance: DAPAGLIFLOZIN
     Indication: DIABETES MELLITUS
     Route: 048
     Dates: start: 20160217, end: 20160926
  2. METFORMIN [Suspect]
     Active Substance: METFORMIN HYDROCHLORIDE
     Dosage: NON AZ PRODUCT
     Route: 065
     Dates: start: 201602

REACTIONS (3)
  - Sepsis [Not Recovered/Not Resolved]
  - Renal abscess [Unknown]
  - Pyelonephritis acute [Recovered/Resolved with Sequelae]

NARRATIVE: CASE EVENT DATE: 2016
